FAERS Safety Report 9837823 (Version 2)
Quarter: 2014Q2

REPORT INFORMATION
  Report Type: Spontaneous
  Country: US (occurrence: None)
  Receive Date: 20131205
  Receipt Date: 20140416
  Transmission Date: 20141212
  Serious: Yes (Hospitalization, Other)
  Sender: FDA-Public Use
  Company Number: 163-POMAL-13101684

PATIENT
  Age: 72 Year
  Sex: Female
  Weight: 70.31 kg

DRUGS (2)
  1. POMALYST [Suspect]
     Indication: PLASMA CELL MYELOMA
     Route: 048
     Dates: start: 20130906
  2. PROCRIT (ERYTHROPOIETIN) [Concomitant]

REACTIONS (6)
  - Haemoglobin decreased [None]
  - Skin ulcer [None]
  - Pruritus [None]
  - Rash [None]
  - Tremor [None]
  - Platelet count decreased [None]
